FAERS Safety Report 4975786-8 (Version None)
Quarter: 2006Q2

REPORT INFORMATION
  Report Type: 
  Country: None (occurrence: None)
  Receive Date: 20060418
  Receipt Date: 20060317
  Transmission Date: 20061013
  Serious: Yes (Hospitalization)
  Sender: FDA-Public Use
  Company Number: US-BOEHRINGER INGELHEIM PHARMACEUTICALS, INC.-2006-BP-03041BP

PATIENT
  Sex: Male

DRUGS (6)
  1. CLONIDINE HCL [Suspect]
     Indication: HYPERTENSION
     Route: 048
     Dates: start: 20051001
  2. FLONASE [Concomitant]
  3. FLOMAX [Concomitant]
     Dates: end: 20060301
  4. ASPIRIN [Concomitant]
  5. DECONGESTANT [Concomitant]
     Dates: end: 20060301
  6. CEPHALEXIN [Concomitant]
     Dates: end: 20060301

REACTIONS (4)
  - ASTHENIA [None]
  - BLOOD PRESSURE INCREASED [None]
  - SENSATION OF HEAVINESS [None]
  - SENSORY DISTURBANCE [None]
